FAERS Safety Report 17630851 (Version 1)
Quarter: 2020Q2

REPORT INFORMATION
  Report Type: Spontaneous
  Country: ES (occurrence: ES)
  Receive Date: 20200406
  Receipt Date: 20200406
  Transmission Date: 20200713
  Serious: Yes (Hospitalization)
  Sender: FDA-Public Use
  Company Number: ES-TEVA-2020-ES-1218920

PATIENT
  Age: 88 Year
  Sex: Female

DRUGS (9)
  1. ENALAPRIL 10 MG COMPRIMIDO [Suspect]
     Active Substance: ENALAPRIL
     Indication: HYPERTENSION
     Dosage: 10 MG
     Route: 048
     Dates: start: 20150402, end: 20190711
  2. OMEPRAZOL CINFAMED 20 MG CAPSULAS DURAS GASTRORESISTENTES EFG , 28 CAP [Concomitant]
  3. HIDROFEROL 0,266 MG SOLUCION ORAL , 10 AMPOLLAS BEBIBLES DE 1,5 ML [Concomitant]
     Active Substance: CALCIFEDIOL
  4. PROTALON 20 MG COMPRIMIDOS RECUBIERTOS CON PELICULA EFG , 56 COMPRIMID [Concomitant]
  5. SUMIAL 10 MG COMPRIMIDOS RECUBIERTOS CON PELICULA , 50 COMPRIMIDOS [Concomitant]
  6. DEPRASER 100 MG COMPRIMIDOS RECUBIERTOS CON PEL?CULA , 30 COMPRIMIDOS [Concomitant]
  7. OSTEOPOR 830 MG COMPRIMIDOS RECUBIERTOS CON PELICULA 40 COMPRIMIDOS [Concomitant]
  8. ARICEPT 10 MG COMPRIMIDOS RECUBIERTOS CON PELICULA , 28 COMPRIMIDOS [Concomitant]
  9. GABAPENTINA 300 MG CAPSULA [Concomitant]

REACTIONS (1)
  - Acute kidney injury [Recovered/Resolved]

NARRATIVE: CASE EVENT DATE: 20150402
